FAERS Safety Report 22331929 (Version 7)
Quarter: 2025Q1

REPORT INFORMATION
  Report Type: Other
  Country: US (occurrence: US)
  Receive Date: 20230517
  Receipt Date: 20250117
  Transmission Date: 20250409
  Serious: No
  Sender: TRAVERE THERAPEUTICS
  Company Number: US-TRAVERE-2023TVT00101

PATIENT
  Age: 57 Year
  Sex: Female
  Weight: 65.32 kg

DRUGS (8)
  1. FILSPARI [Suspect]
     Active Substance: SPARSENTAN
     Indication: IgA nephropathy
     Route: 048
     Dates: start: 20230408
  2. FILSPARI [Suspect]
     Active Substance: SPARSENTAN
     Indication: Chronic kidney disease
     Route: 048
     Dates: start: 202303
  3. FILSPARI [Suspect]
     Active Substance: SPARSENTAN
     Indication: Proteinuria
     Route: 048
     Dates: start: 202408
  4. FILSPARI [Suspect]
     Active Substance: SPARSENTAN
     Indication: Haematuria
  5. Vitamin D2 50 mcg capsule [Concomitant]
  6. B complex tablet [Concomitant]
  7. Cod liver oil 100% [Concomitant]
  8. Estroven 155 mg capsule [Concomitant]

REACTIONS (12)
  - Dyspnoea [None]
  - Weight increased [None]
  - Dizziness [Unknown]
  - Diarrhoea [None]
  - Hormone level abnormal [None]
  - Hot flush [None]
  - Blood creatinine abnormal [Recovered/Resolved]
  - Dyspnoea exertional [None]
  - Night sweats [Unknown]
  - Fatigue [Unknown]
  - Hypertension [Unknown]
  - Haemoglobin decreased [Unknown]

NARRATIVE: CASE EVENT DATE: 20230506
